FAERS Safety Report 23139881 (Version 2)
Quarter: 2024Q1

REPORT INFORMATION
  Report Type: Report from Study
  Country: US (occurrence: US)
  Receive Date: 20231102
  Receipt Date: 20240108
  Transmission Date: 20240409
  Serious: Yes (Other)
  Sender: FDA-Public Use
  Company Number: US-002147023-NVSC2023US232102

PATIENT
  Sex: Female

DRUGS (1)
  1. ENTRESTO [Suspect]
     Active Substance: SACUBITRIL\VALSARTAN
     Indication: Product used for unknown indication
     Dosage: 1 DOSAGE FORM, BID (STARTED 3-4 YEARS AGO)
     Route: 065

REACTIONS (4)
  - Dementia Alzheimer^s type [Unknown]
  - Visual impairment [Unknown]
  - Increased appetite [Unknown]
  - Weight fluctuation [Recovering/Resolving]
